FAERS Safety Report 25663328 (Version 4)
Quarter: 2025Q3

REPORT INFORMATION
  Report Type: Report from Study
  Country: US (occurrence: US)
  Receive Date: 20250811
  Receipt Date: 20250903
  Transmission Date: 20251020
  Serious: Yes (Other)
  Sender: TAKEDA
  Company Number: US-TAKEDA-2025TUS063428

PATIENT
  Sex: Male

DRUGS (8)
  1. PONATINIB [Suspect]
     Active Substance: PONATINIB
     Indication: Chronic myeloid leukaemia
     Dosage: 30 MILLIGRAM, QD
  2. PONATINIB [Suspect]
     Active Substance: PONATINIB
     Dosage: 30 MILLIGRAM, QD
  3. PONATINIB [Suspect]
     Active Substance: PONATINIB
     Dosage: 15 MILLIGRAM, QD
  4. ISOSORBIDE MONONITRATE [Concomitant]
     Active Substance: ISOSORBIDE MONONITRATE
  5. ASPIRIN [Concomitant]
     Active Substance: ASPIRIN
  6. NIFEDIPINE [Concomitant]
     Active Substance: NIFEDIPINE
  7. METOPROLOL SUCCINATE [Concomitant]
     Active Substance: METOPROLOL SUCCINATE
  8. ATORVASTATIN CALCIUM [Concomitant]
     Active Substance: ATORVASTATIN CALCIUM

REACTIONS (10)
  - Seizure [Recovering/Resolving]
  - Product use issue [Unknown]
  - Product dose omission issue [Unknown]
  - Off label use [Unknown]
  - Nonspecific reaction [Unknown]
  - Insomnia [Recovering/Resolving]
  - Abdominal distension [Unknown]
  - Decreased appetite [Recovering/Resolving]
  - Abdominal discomfort [Recovering/Resolving]
  - Gastritis [Recovering/Resolving]
